FAERS Safety Report 19238803 (Version 1)
Quarter: 2021Q2

REPORT INFORMATION
  Report Type: Spontaneous
  Country: US (occurrence: US)
  Receive Date: 20210510
  Receipt Date: 20210510
  Transmission Date: 20210717
  Serious: Yes (Other)
  Sender: FDA-Public Use
  Company Number: US-SA-2021SA152038

PATIENT
  Age: 36 Year
  Sex: Female

DRUGS (1)
  1. DUPIXENT [Suspect]
     Active Substance: DUPILUMAB
     Indication: DERMATITIS ATOPIC
     Dosage: 300 MG, QOW
     Route: 058
     Dates: start: 201804, end: 2021

REACTIONS (5)
  - Eye pruritus [Unknown]
  - Dry eye [Unknown]
  - Conjunctivitis [Unknown]
  - Phlebitis [Unknown]
  - Visual impairment [Unknown]

NARRATIVE: CASE EVENT DATE: 20210201
